FAERS Safety Report 9915710 (Version 1)
Quarter: 2014Q1

REPORT INFORMATION
  Report Type: Spontaneous
  Country: US (occurrence: None)
  Receive Date: 20140219
  Receipt Date: 20140219
  Transmission Date: 20141002
  Serious: Yes (Other)
  Sender: FDA-Public Use
  Company Number: None

PATIENT
  Age: 79 Year
  Sex: Female
  Weight: 58.97 kg

DRUGS (6)
  1. MIRTAZAPINE [Suspect]
     Indication: SLEEP DISORDER
     Dosage: 15 MG?1 TABLET AT BEDTIME?1 PER DAY?MOUTH
     Route: 048
     Dates: start: 20140128, end: 20140130
  2. ATENOLOL [Concomitant]
  3. HYDROCHLOROTHEZE [Concomitant]
  4. ATORVASTATIN [Concomitant]
  5. L THYROXINE [Concomitant]
  6. ZYRTEC [Concomitant]

REACTIONS (7)
  - Abnormal dreams [None]
  - Middle insomnia [None]
  - Hyperhidrosis [None]
  - Dyspnoea [None]
  - Feeling abnormal [None]
  - Fear [None]
  - Vision blurred [None]
